FAERS Safety Report 4902779-9 (Version None)
Quarter: 2006Q1

REPORT INFORMATION
  Report Type: 
  Country: None (occurrence: None)
  Receive Date: 20060207
  Receipt Date: 20060201
  Transmission Date: 20060701
  Serious: Yes (Other)
  Sender: FDA-Public Use
  Company Number: CA-GLAXOSMITHKLINE-A0592521A

PATIENT
  Age: 42 Year
  Sex: Female

DRUGS (3)
  1. WELLBUTRIN SR [Suspect]
     Indication: DRUG USE FOR UNKNOWN INDICATION
     Dosage: 150MG PER DAY
     Route: 048
  2. DIDRONEL [Concomitant]
  3. EFFEXOR XR [Concomitant]

REACTIONS (7)
  - BLOOD LACTATE DEHYDROGENASE ABNORMAL [None]
  - DIARRHOEA [None]
  - DIZZINESS [None]
  - HEADACHE [None]
  - JAUNDICE [None]
  - LYMPHOPENIA [None]
  - VOMITING [None]
